FAERS Safety Report 15640233 (Version 4)
Quarter: 2020Q4

REPORT INFORMATION
  Report Type: Spontaneous
  Country: US (occurrence: US)
  Receive Date: 20181120
  Receipt Date: 20201209
  Transmission Date: 20210113
  Serious: Yes (Other)
  Sender: FDA-Public Use
  Company Number: US-PFIZER INC-2018465176

PATIENT
  Age: 72 Year
  Sex: Female
  Weight: 72.56 kg

DRUGS (5)
  1. TELMISARTAN HCTZ [Concomitant]
     Active Substance: HYDROCHLOROTHIAZIDE\TELMISARTAN
     Indication: BLOOD PRESSURE ABNORMAL
     Dosage: 1 DF, DAILY (HYDROCHLOROTHIAZIDE 25MG / TELMISARTAN 80 MG)
     Dates: start: 201808
  2. CALCIUM [Concomitant]
     Active Substance: CALCIUM
     Indication: BONE DISORDER
     Dosage: 1 DF, DAILY
     Dates: start: 1998
  3. XELJANZ XR [Suspect]
     Active Substance: TOFACITINIB CITRATE
     Indication: PSORIASIS
     Dosage: 11 MG, 1X/DAY (DAILY)
     Route: 048
     Dates: start: 2018
  4. XELJANZ XR [Suspect]
     Active Substance: TOFACITINIB CITRATE
     Indication: ARTHRITIS
     Dosage: 11 MG, 1X/DAY
     Route: 048
     Dates: start: 2018
  5. METOPROLOL. [Concomitant]
     Active Substance: METOPROLOL
     Indication: BLOOD PRESSURE ABNORMAL
     Dosage: 50 MG, DAILY
     Dates: start: 2014

REACTIONS (5)
  - Off label use [Unknown]
  - Cataract [Unknown]
  - Arthralgia [Not Recovered/Not Resolved]
  - Immune system disorder [Unknown]
  - Oropharyngeal pain [Not Recovered/Not Resolved]

NARRATIVE: CASE EVENT DATE: 201811
